FAERS Safety Report 10046544 (Version 1)
Quarter: 2014Q1

REPORT INFORMATION
  Report Type: Spontaneous
  Country: US (occurrence: US)
  Receive Date: 20140331
  Receipt Date: 20140331
  Transmission Date: 20141002
  Serious: No
  Sender: FDA-Public Use
  Company Number: US-BIOGENIDEC-2014BI028144

PATIENT
  Sex: Female

DRUGS (6)
  1. TECFIDERA [Suspect]
     Indication: MULTIPLE SCLEROSIS
     Route: 048
     Dates: start: 20131115, end: 20131121
  2. TECFIDERA [Suspect]
     Indication: MULTIPLE SCLEROSIS
     Route: 048
     Dates: start: 20131122
  3. NORTRIPTYLINE [Concomitant]
  4. VITAMIN B12 [Concomitant]
  5. VITAMIN B1 [Concomitant]
  6. ALBUTEROL [Concomitant]

REACTIONS (4)
  - Malaise [Unknown]
  - Hypertension [Unknown]
  - Abdominal discomfort [Unknown]
  - Flushing [Unknown]
